FAERS Safety Report 5878665-7 (Version None)
Quarter: 2008Q3

REPORT INFORMATION
  Report Type: 
  Country: None (occurrence: None)
  Receive Date: 20080912
  Receipt Date: 20080825
  Transmission Date: 20090109
  Serious: Yes (Other)
  Sender: FDA-Public Use
  Company Number: US-BAYER-200823578NA

PATIENT
  Age: 41 Year
  Sex: Female

DRUGS (5)
  1. BETASERON [Suspect]
     Indication: RELAPSING-REMITTING MULTIPLE SCLEROSIS
     Dosage: TOTAL DAILY DOSE: 8 MIU
     Route: 058
     Dates: start: 20080227, end: 20080517
  2. ZOLOFT [Concomitant]
     Dosage: TOTAL DAILY DOSE: 100 MG
  3. SEROQUEL [Concomitant]
  4. SOLU-MEDROL [Concomitant]
     Dosage: TOTAL DAILY DOSE: 1000 MG
     Route: 042
  5. ELAVIL [Concomitant]
     Dosage: TOTAL DAILY DOSE: 75 MG

REACTIONS (4)
  - HEPATIC ENZYME INCREASED [None]
  - JAUNDICE [None]
  - URINE ANALYSIS ABNORMAL [None]
  - YELLOW SKIN [None]
